FAERS Safety Report 5300618-8 (Version None)
Quarter: 2007Q2

REPORT INFORMATION
  Report Type: 
  Country: None (occurrence: None)
  Receive Date: 20070418
  Receipt Date: 20070409
  Transmission Date: 20071010
  Serious: Yes (Other)
  Sender: FDA-Public Use
  Company Number: US-JNJFOC-20070304332

PATIENT
  Sex: Male
  Weight: 111.59 kg

DRUGS (2)
  1. REMICADE [Suspect]
     Indication: CROHN'S DISEASE
     Route: 042
     Dates: start: 20020828, end: 20070116
  2. ENTOCORT [Concomitant]
     Indication: CROHN'S DISEASE
     Route: 065

REACTIONS (2)
  - CROHN'S DISEASE [None]
  - NON-HODGKIN'S LYMPHOMA [None]
